FAERS Safety Report 9081636 (Version 1)
Quarter: 2013Q1

REPORT INFORMATION
  Report Type: Spontaneous
  Country: JP (occurrence: JP)
  Receive Date: 20130130
  Receipt Date: 20130130
  Transmission Date: 20140127
  Serious: Yes (Hospitalization)
  Sender: FDA-Public Use
  Company Number: PHHY2013JP006520

PATIENT
  Age: 72 Year
  Sex: Female

DRUGS (3)
  1. MINOCYCLINE [Suspect]
     Indication: RHEUMATOID ARTHRITIS
     Dosage: 200 MG, UNK
  2. PREDNISOLONE [Concomitant]
     Indication: RHEUMATOID ARTHRITIS
     Dosage: 5 MG, UNK
  3. SULFASALAZINE [Concomitant]
     Indication: RHEUMATOID ARTHRITIS

REACTIONS (9)
  - Myopathy [Recovering/Resolving]
  - Areflexia [Recovering/Resolving]
  - Gait disturbance [Recovering/Resolving]
  - Muscular weakness [Recovering/Resolving]
  - Muscle atrophy [Recovering/Resolving]
  - Myalgia [Recovering/Resolving]
  - Peripheral sensory neuropathy [Recovering/Resolving]
  - Sensory loss [Recovering/Resolving]
  - Pigmentation disorder [Recovering/Resolving]
